FAERS Safety Report 16252570 (Version 1)
Quarter: 2019Q2

REPORT INFORMATION
  Report Type: Spontaneous
  Country: IT (occurrence: IT)
  Receive Date: 20190429
  Receipt Date: 20190429
  Transmission Date: 20190711
  Serious: No
  Sender: FDA-Public Use
  Company Number: IT-B. BRAUN MEDICAL INC.-2066405

PATIENT
  Age: 86 Year
  Sex: Male
  Weight: 75 kg

DRUGS (6)
  1. POTASSIUM CHLORIDE FOR INJECTION CONCENTRATE USP 0264-1940-20 (ANDA 08 [Suspect]
     Active Substance: POTASSIUM CHLORIDE
     Indication: HYPOKALAEMIA
     Route: 041
  2. OLIMEL PERIFERICO N4E [Concomitant]
     Route: 041
  3. ZERBAXA [Concomitant]
     Active Substance: CEFTOLOZANE SULFATE\TAZOBACTAM SODIUM
     Route: 041
  4. CALCIUM GLUCONATE. [Concomitant]
     Active Substance: CALCIUM GLUCONATE
     Route: 041
  5. CUBICIN [Concomitant]
     Active Substance: DAPTOMYCIN
     Route: 041
  6. CASPOFUNGIN ACETATE. [Concomitant]
     Active Substance: CASPOFUNGIN ACETATE

REACTIONS (1)
  - Flushing [Not Recovered/Not Resolved]

NARRATIVE: CASE EVENT DATE: 20180429
